FAERS Safety Report 14057176 (Version 1)
Quarter: 2017Q4

REPORT INFORMATION
  Report Type: Spontaneous
  Country: ES (occurrence: ES)
  Receive Date: 20171006
  Receipt Date: 20171006
  Transmission Date: 20180321
  Serious: Yes (Other)
  Sender: FDA-Public Use
  Company Number: ES-PERRIGO-17ES027248

PATIENT

DRUGS (1)
  1. BUDESONIDE. [Suspect]
     Active Substance: BUDESONIDE
     Indication: COLITIS MICROSCOPIC
     Dosage: 9 MG, QD
     Route: 048

REACTIONS (4)
  - Drug intolerance [Unknown]
  - Off label use [Recovered/Resolved]
  - Stomatitis [Unknown]
  - Hypertensive crisis [Unknown]
